FAERS Safety Report 5359463-X (Version None)
Quarter: 2007Q2

REPORT INFORMATION
  Report Type: 
  Country: None (occurrence: None)
  Receive Date: 20070615
  Receipt Date: 20070522
  Transmission Date: 20071010
  Serious: Yes (Hospitalization)
  Sender: FDA-Public Use
  Company Number: KR-GENENTECH-242455

PATIENT
  Sex: Female
  Weight: 56 kg

DRUGS (5)
  1. MABTHERA [Suspect]
     Indication: DRUG USE FOR UNKNOWN INDICATION
     Dosage: 375 MG/M2, UNK
     Route: 042
     Dates: start: 20061101, end: 20070220
  2. CYCLOPHOSPHAMIDE [Concomitant]
     Indication: DRUG USE FOR UNKNOWN INDICATION
     Dosage: 750 MG/M2, UNK
     Route: 042
     Dates: start: 20061101, end: 20070220
  3. DOXORUBICIN HCL [Concomitant]
     Indication: DRUG USE FOR UNKNOWN INDICATION
     Dosage: 50 MG/M2, UNK
     Route: 042
     Dates: start: 20061101, end: 20070220
  4. VINCRISTINE [Concomitant]
     Indication: DRUG USE FOR UNKNOWN INDICATION
     Dosage: 1.4 MG/M2, UNK
     Route: 042
     Dates: start: 20061101, end: 20070220
  5. PREDNISONE TAB [Concomitant]
     Indication: DRUG USE FOR UNKNOWN INDICATION
     Dosage: 100 MG, UNK
     Route: 048
     Dates: start: 20061101, end: 20070224

REACTIONS (1)
  - FACIAL PALSY [None]
